FAERS Safety Report 5515209-3 (Version None)
Quarter: 2007Q4

REPORT INFORMATION
  Report Type: 
  Country: None (occurrence: None)
  Receive Date: 20071109
  Receipt Date: 20071102
  Transmission Date: 20080405
  Serious: Yes (Death, Hospitalization)
  Sender: FDA-Public Use
  Company Number: 163-21880-07110231

PATIENT
  Age: 80 Year
  Sex: Male

DRUGS (5)
  1. REVLIMID [Suspect]
     Indication: ACUTE MYELOID LEUKAEMIA
     Dosage: 10 MG, QD, ORAL
     Route: 048
     Dates: start: 20070301, end: 20070621
  2. QUININE SULFATE [Concomitant]
  3. GUAIFENESIN [Concomitant]
  4. ACETAMINOPHEN [Concomitant]
  5. NEXIUM [Concomitant]

REACTIONS (5)
  - DRUG INTOLERANCE [None]
  - GENERAL PHYSICAL HEALTH DETERIORATION [None]
  - LUNG INFILTRATION [None]
  - PLEURITIC PAIN [None]
  - PNEUMONIA [None]
